FAERS Safety Report 8970834 (Version 3)
Quarter: 2013Q1

REPORT INFORMATION
  Report Type: Report from Study
  Country: US (occurrence: US)
  Receive Date: 20121218
  Receipt Date: 20130124
  Transmission Date: 20140127
  Serious: Yes (Hospitalization, Other)
  Sender: FDA-Public Use
  Company Number: US-ROCHE-1077560

PATIENT
  Age: 38 Year
  Sex: Female
  Weight: 102.15 kg

DRUGS (39)
  1. OMALIZUMAB [Suspect]
     Indication: ASTHMA
     Dosage: 1ST TRIMESTER
     Route: 058
     Dates: start: 20110201
  2. OMALIZUMAB [Suspect]
     Route: 058
     Dates: start: 20120130
  3. OMALIZUMAB [Suspect]
     Dosage: 1ST TRIMESTER
     Route: 058
     Dates: start: 20120304
  4. OMALIZUMAB [Suspect]
     Dosage: 1ST TRIMESTER
     Route: 058
     Dates: start: 20120402
  5. OMALIZUMAB [Suspect]
     Dosage: 1ST TRIMESTER
     Route: 058
     Dates: start: 20120509
  6. OMALIZUMAB [Suspect]
     Dosage: 2ND TRIMESTER
     Route: 058
     Dates: start: 20120614
  7. OMALIZUMAB [Suspect]
     Dosage: 2ND TRIMESTER
     Route: 058
     Dates: start: 20120629
  8. OMALIZUMAB [Suspect]
     Dosage: 2ND TRIMESTER
     Route: 058
     Dates: start: 20120730
  9. OMALIZUMAB [Suspect]
     Dosage: 2ND TRIMESTER
     Route: 058
     Dates: start: 20120831
  10. OMALIZUMAB [Suspect]
     Dosage: 2ND TRIMESTER
     Route: 058
     Dates: start: 20120702
  11. OMALIZUMAB [Suspect]
     Dosage: 2ND TRIMESTER
     Route: 058
     Dates: start: 20120803
  12. OMALIZUMAB [Suspect]
     Dosage: 2ND TRIMESTER
     Route: 058
     Dates: start: 20120831
  13. OMALIZUMAB [Suspect]
     Dosage: 3RD TRIMESTER
     Route: 058
     Dates: start: 20120928
  14. OMALIZUMAB [Suspect]
     Dosage: 3RD TRIMESTER
     Route: 058
     Dates: start: 20121030
  15. OMALIZUMAB [Suspect]
     Route: 058
     Dates: start: 20121203
  16. OMALIZUMAB [Suspect]
     Route: 058
     Dates: start: 20130103
  17. ALVESCO [Concomitant]
     Indication: ASTHMA
  18. ASPIRIN [Concomitant]
     Dosage: FOR HISTORY OF PULMONARY EMBOLI
     Route: 065
  19. HYDROXYZINE [Concomitant]
     Indication: HYPERSENSITIVITY
  20. ALLEGRA [Concomitant]
     Indication: HYPERSENSITIVITY
  21. RED RICE YEAST [Concomitant]
     Dosage: FOR WELL BEING
     Route: 065
  22. COQ-10 [Concomitant]
     Dosage: FOR WELL BEING
     Route: 065
  23. MULTIVITAMIN [Concomitant]
     Dosage: FOR WELL BEING
     Route: 065
  24. ZOFRAN [Concomitant]
     Indication: NAUSEA
  25. PRENATAL VITAMIN [Concomitant]
     Indication: PREGNANCY
  26. CALCIUM [Concomitant]
     Indication: PREGNANCY
  27. CLARITIN [Concomitant]
     Indication: HYPERSENSITIVITY
  28. BENADRYL [Concomitant]
     Indication: HYPERSENSITIVITY
  29. TYLENOL [Concomitant]
     Indication: PAIN
  30. ALBUTEROL [Concomitant]
     Indication: ASTHMA
     Dosage: INHALER
     Route: 065
  31. HEPARIN [Concomitant]
     Indication: PULMONARY EMBOLISM
     Route: 065
     Dates: start: 201210, end: 201211
  32. TORADOL [Concomitant]
     Indication: PROCEDURAL PAIN
  33. MORPHINE [Concomitant]
     Indication: PROCEDURAL PAIN
  34. DILAUDID [Concomitant]
     Indication: PROCEDURAL PAIN
  35. PERCOCET [Concomitant]
     Indication: PROCEDURAL PAIN
  36. NUBAIN [Concomitant]
     Indication: PROCEDURAL PAIN
  37. LOVENOX [Concomitant]
     Indication: PULMONARY EMBOLISM
     Route: 065
     Dates: end: 201210
  38. LOVENOX [Concomitant]
     Route: 065
     Dates: start: 201211
  39. PITOCIN [Concomitant]
     Indication: LABOUR INDUCTION
     Route: 065
     Dates: start: 20121124, end: 20121125

REACTIONS (2)
  - Exposure during pregnancy [Unknown]
  - Pre-eclampsia [Recovered/Resolved]
